FAERS Safety Report 5723029-X (Version None)
Quarter: 2008Q2

REPORT INFORMATION
  Report Type: 
  Country: None (occurrence: None)
  Receive Date: 20080428
  Receipt Date: 20080428
  Transmission Date: 20081010
  Serious: Yes (Other)
  Sender: FDA-Public Use
  Company Number: None

PATIENT
  Age: 78 Year
  Sex: Female

DRUGS (6)
  1. PREVALITE [Suspect]
     Indication: BLOOD CHOLESTEROL DECREASED
     Dosage: 1 PACKET (4 GM) ORALLY WITH WATER TWICE A DAY
     Route: 048
     Dates: start: 20080413, end: 20080414
  2. PRIMIDONE [Concomitant]
  3. LIPITOR [Concomitant]
  4. FOSAMAX [Concomitant]
  5. GABAPENTIN [Concomitant]
  6. PROTONIX [Concomitant]

REACTIONS (5)
  - BURNING SENSATION [None]
  - COUGH [None]
  - IRRITABILITY [None]
  - PHARMACEUTICAL PRODUCT COMPLAINT [None]
  - THROAT IRRITATION [None]
